FAERS Safety Report 5141683-0 (Version None)
Quarter: 2006Q4

REPORT INFORMATION
  Report Type: 
  Country: None (occurrence: None)
  Receive Date: 20061026
  Receipt Date: 20061011
  Transmission Date: 20070319
  Serious: Yes (Hospitalization)
  Sender: FDA-Public Use
  Company Number: 2006BI009910

PATIENT
  Age: 67 Year
  Sex: Male

DRUGS (7)
  1. AVONEX [Suspect]
     Indication: MULTIPLE SCLEROSIS
     Dosage: 30 UG; QW; IM
     Route: 030
     Dates: start: 19930101
  2. AVONEX [Suspect]
     Indication: MULTIPLE SCLEROSIS
     Dosage: 30 UG; QW; IM
     Route: 030
     Dates: start: 20040614
  3. FOSOMAX [Concomitant]
  4. ALBUTEROL [Concomitant]
  5. PREDNISONE TAB [Concomitant]
  6. ASACOL [Concomitant]
  7. LOMOTIL [Concomitant]

REACTIONS (2)
  - COLITIS ULCERATIVE [None]
  - DYSPNOEA [None]
